FAERS Safety Report 9253269 (Version 1)
Quarter: 2013Q2

REPORT INFORMATION
  Report Type: Spontaneous
  Country: DE (occurrence: DE)
  Receive Date: 20130424
  Receipt Date: 20130424
  Transmission Date: 20140414
  Serious: Yes (Other)
  Sender: FDA-Public Use
  Company Number: DE-ELI_LILLY_AND_COMPANY-DE201304006163

PATIENT
  Sex: 0

DRUGS (2)
  1. PRASUGREL HYDROCHLORIDE [Suspect]
     Indication: PLATELET AGGREGATION ABNORMAL
     Dosage: LOADING DOSE
  2. PRASUGREL HYDROCHLORIDE [Suspect]
     Dosage: MAINTENANCE DOSE

REACTIONS (1)
  - Acute myocardial infarction [Unknown]
